FAERS Safety Report 18695662 (Version 1)
Quarter: 2021Q1

REPORT INFORMATION
  Report Type: Spontaneous
  Country: US (occurrence: US)
  Receive Date: 20210104
  Receipt Date: 20210104
  Transmission Date: 20210419
  Serious: No
  Sender: FDA-Public Use
  Company Number: None

PATIENT
  Age: 72 Year
  Sex: Female
  Weight: 95.45 kg

DRUGS (2)
  1. 0.9% SODIUM CHLORIDE 50 ML [Concomitant]
     Dates: start: 20210102, end: 20210102
  2. BAMLANIVIMAB. [Suspect]
     Active Substance: BAMLANIVIMAB
     Indication: COVID-19
     Dosage: ?          OTHER FREQUENCY:ONCE;?
     Route: 041
     Dates: start: 20210102, end: 20210102

REACTIONS (3)
  - Throat tightness [None]
  - Odynophagia [None]
  - Pharyngeal erythema [None]

NARRATIVE: CASE EVENT DATE: 20210102
